FAERS Safety Report 21336996 (Version 1)
Quarter: 2022Q3

REPORT INFORMATION
  Report Type: Spontaneous
  Country: KR (occurrence: KR)
  Receive Date: 20220915
  Receipt Date: 20220915
  Transmission Date: 20221026
  Serious: Yes (Other)
  Sender: FDA-Public Use
  Company Number: KR-ASTELLAS-2022US032435

PATIENT
  Age: 75 Year
  Sex: Male

DRUGS (2)
  1. MIRABEGRON [Suspect]
     Active Substance: MIRABEGRON
     Indication: Pollakiuria
     Dosage: 50 MG, ONCE DAILY (ONE TABLET ONCE DAILY)
     Route: 065
  2. MIRABEGRON [Suspect]
     Active Substance: MIRABEGRON
     Indication: Benign prostatic hyperplasia

REACTIONS (12)
  - Diabetes mellitus [Unknown]
  - Chest discomfort [Unknown]
  - Vision blurred [Unknown]
  - Skin disorder [Unknown]
  - Pyrexia [Unknown]
  - Lip dry [Unknown]
  - Chest pain [Unknown]
  - Blood pressure abnormal [Unknown]
  - Gastrointestinal disorder [Unknown]
  - Insomnia [Unknown]
  - Nervous system disorder [Unknown]
  - Off label use [Unknown]
